FAERS Safety Report 12841145 (Version 1)
Quarter: 2016Q4

REPORT INFORMATION
  Report Type: Spontaneous
  Country: US (occurrence: US)
  Receive Date: 20161012
  Receipt Date: 20161012
  Transmission Date: 20170207
  Serious: Yes (Other)
  Sender: FDA-Public Use
  Company Number: US-MYLANLABS-2016M1043772

PATIENT

DRUGS (3)
  1. CYTARABINE. [Concomitant]
     Active Substance: CYTARABINE
     Indication: ACUTE LYMPHOCYTIC LEUKAEMIA
     Route: 042
  2. MERCAPTOPURINE. [Concomitant]
     Active Substance: MERCAPTOPURINE
     Indication: ACUTE LYMPHOCYTIC LEUKAEMIA
     Route: 048
  3. METHOTREXATE. [Suspect]
     Active Substance: METHOTREXATE
     Indication: ACUTE LYMPHOCYTIC LEUKAEMIA
     Dosage: TOTAL OF 75 MG (PROTOCOL MENTIONS 15MG/DOSE)
     Route: 037

REACTIONS (7)
  - Ataxia [Unknown]
  - Mental status changes [Unknown]
  - Dysarthria [Unknown]
  - Aphasia [Unknown]
  - Mastication disorder [Unknown]
  - Neurotoxicity [Unknown]
  - Gait disturbance [Unknown]
